FAERS Safety Report 25059810 (Version 1)
Quarter: 2025Q1

REPORT INFORMATION
  Report Type: Spontaneous
  Country: US (occurrence: US)
  Receive Date: 20250310
  Receipt Date: 20250310
  Transmission Date: 20250408
  Serious: No
  Sender: ROCHE
  Company Number: US-ROCHE-10000221630

PATIENT
  Sex: Male

DRUGS (1)
  1. HEMLIBRA [Suspect]
     Active Substance: EMICIZUMAB-KXWH
     Indication: Factor VIII deficiency
     Dosage: MAINTENANCE DOSE (105MG AND 750MG TOTAL DOSE 855MG)?STRENGTH- 105MG/0,7ML AND 150MG/ML
     Route: 058
     Dates: start: 202501

REACTIONS (1)
  - Epistaxis [Unknown]
